FAERS Safety Report 8830257 (Version 1)
Quarter: 2012Q4

REPORT INFORMATION
  Report Type: 
  Country: US (occurrence: US)
  Receive Date: 20121008
  Receipt Date: 20121008
  Transmission Date: 20130627
  Serious: No
  Sender: FDA-Public Use
  Company Number: US-VERTEX PHARMACEUTICAL INC.-2012-021614

PATIENT
  Sex: Female
  Weight: 117 kg

DRUGS (4)
  1. VX-950 [Suspect]
     Indication: HEPATITIS C
     Dosage: 750 mg, tid
     Route: 048
     Dates: start: 2012, end: 201206
  2. PEGASYS [Concomitant]
     Indication: HEPATITIS C
     Dosage: 180 ?g, UNK
     Route: 058
     Dates: start: 2012, end: 201206
  3. RIBASPERE [Concomitant]
     Indication: HEPATITIS C
     Dosage: 3 am/ 4 pm
     Dates: start: 2012, end: 201206
  4. YASMIN 28 [Concomitant]
     Dosage: UNK, qd

REACTIONS (1)
  - Haemoglobin decreased [Unknown]
